FAERS Safety Report 11355087 (Version 1)
Quarter: 2015Q3

REPORT INFORMATION
  Report Type: Spontaneous
  Country: US (occurrence: US)
  Receive Date: 20150807
  Receipt Date: 20150807
  Transmission Date: 20151125
  Serious: No
  Sender: FDA-Public Use
  Company Number: US-JNJFOC-20150718992

PATIENT
  Age: 46 Year
  Sex: Female
  Weight: 49.9 kg

DRUGS (6)
  1. GREEN TEA EXTRACT [Concomitant]
     Indication: PHYTOTHERAPY
     Route: 065
  2. BIOTIN [Concomitant]
     Active Substance: BIOTIN
     Indication: VITAMIN SUPPLEMENTATION
     Route: 065
  3. ZYRTEC [Suspect]
     Active Substance: CETIRIZINE HYDROCHLORIDE
     Route: 048
  4. GINGER ROOT [Concomitant]
     Indication: PHYTOTHERAPY
     Route: 065
  5. ZYRTEC [Suspect]
     Active Substance: CETIRIZINE HYDROCHLORIDE
     Indication: MULTIPLE ALLERGIES
     Dosage: EVERY NIGHT
     Route: 048
  6. HERBAL NOS [Concomitant]
     Active Substance: HERBALS
     Indication: PHYTOTHERAPY
     Route: 065

REACTIONS (3)
  - Product use issue [Unknown]
  - Constipation [Recovering/Resolving]
  - Therapeutic response unexpected [Unknown]
